FAERS Safety Report 24150816 (Version 1)
Quarter: 2024Q3

REPORT INFORMATION
  Report Type: Spontaneous
  Country: US (occurrence: US)
  Receive Date: 20240730
  Receipt Date: 20240730
  Transmission Date: 20241017
  Serious: No
  Sender: JOHNSON AND JOHNSON
  Company Number: US-JNJFOC-20240731786

PATIENT
  Age: 67 Year
  Sex: Female

DRUGS (8)
  1. TYLENOL [Suspect]
     Active Substance: ACETAMINOPHEN
     Indication: Headache
     Route: 065
  2. TYVASO [Concomitant]
     Active Substance: TREPROSTINIL
     Indication: Pulmonary arterial hypertension
     Dosage: 72 UG
     Route: 055
  3. TYVASO [Concomitant]
     Active Substance: TREPROSTINIL
     Dosage: 36 UG
     Route: 055
  4. TYVASO [Concomitant]
     Active Substance: TREPROSTINIL
     Dosage: 60 UG
     Route: 055
     Dates: end: 2024
  5. TYVASO [Concomitant]
     Active Substance: TREPROSTINIL
     Dosage: 66 UG
     Route: 055
     Dates: start: 2024, end: 2024
  6. TYVASO [Concomitant]
     Active Substance: TREPROSTINIL
     Dosage: 72 UG
     Route: 055
     Dates: start: 2024, end: 20240706
  7. TYVASO [Concomitant]
     Active Substance: TREPROSTINIL
     Dosage: 48 UG
     Route: 055
     Dates: start: 20240706
  8. TYVASO [Concomitant]
     Active Substance: TREPROSTINIL
     Dosage: TYVASO (TREPROSTINIL SODIUM, CONCENTRATION OF 0.6 MG/ML)
     Route: 055
     Dates: start: 202304

REACTIONS (1)
  - Product use in unapproved indication [Unknown]
